FAERS Safety Report 5121906-4 (Version None)
Quarter: 2006Q4

REPORT INFORMATION
  Report Type: 
  Country: None (occurrence: None)
  Receive Date: 20061006
  Receipt Date: 20051130
  Transmission Date: 20070319
  Serious: Yes (Hospitalization)
  Sender: FDA-Public Use
  Company Number: US-BRISTOL-MYERS SQUIBB COMPANY-13201074

PATIENT
  Age: 66 Year
  Sex: Female

DRUGS (5)
  1. IRINOTECAN HCL [Suspect]
     Indication: COLORECTAL CANCER METASTATIC
     Dosage: 4TH CYCLE. THERAPY START DATE 13-SEP-05.
     Route: 042
     Dates: start: 20051122, end: 20051122
  2. IMODIUM [Concomitant]
     Indication: DIARRHOEA
     Dosage: 2 MG, 2 AS NEEDED.
     Route: 048
     Dates: start: 20051012
  3. DARVOCET-N 100 [Concomitant]
     Indication: ARTHRALGIA
     Dosage: 1-2 TABLETS TWICE PER DAY PRN
     Route: 048
     Dates: start: 20050913
  4. DARVOCET-N 100 [Concomitant]
     Indication: PAIN IN EXTREMITY
     Dosage: 1-2 TABLETS TWICE PER DAY PRN
     Route: 048
     Dates: start: 20050913
  5. KYTRIL [Concomitant]
     Indication: NAUSEA
     Route: 048
     Dates: start: 20051103

REACTIONS (2)
  - NAUSEA [None]
  - VOMITING [None]
